FAERS Safety Report 8274120-8 (Version None)
Quarter: 2012Q2

REPORT INFORMATION
  Report Type: 
  Country: None (occurrence: None)
  Receive Date: 20120406
  Receipt Date: 20120406
  Transmission Date: 20120825
  Serious: Yes (Hospitalization)
  Sender: FDA-Public Use
  Company Number: None

PATIENT
  Age: 16 Year
  Sex: Female
  Weight: 103.6 kg

DRUGS (1)
  1. ORTHO-CEPT [Suspect]
     Indication: MENSTRUATION IRREGULAR
     Dosage: DAILY PO
     Route: 048
     Dates: start: 20120201, end: 20120331

REACTIONS (1)
  - PULMONARY EMBOLISM [None]
